FAERS Safety Report 6928251-2 (Version None)
Quarter: 2010Q3

REPORT INFORMATION
  Report Type: 
  Country: None (occurrence: None)
  Receive Date: 20100817
  Receipt Date: 20100804
  Transmission Date: 20110219
  Serious: Yes (Hospitalization)
  Sender: FDA-Public Use
  Company Number: IE-ROCHE-719292

PATIENT
  Sex: Male

DRUGS (9)
  1. TAMIFLU [Suspect]
     Indication: PRODUCT USED FOR UNKNOWN INDICATION
     Route: 065
  2. VIMPAT [Suspect]
     Indication: EPILEPSY
     Route: 048
     Dates: start: 20100713
  3. TRILEPTAL [Concomitant]
  4. KEPPRA [Concomitant]
  5. PHENOBARBITAL [Concomitant]
  6. SERENACE [Concomitant]
  7. CALCICHEW D3 FORTE [Concomitant]
  8. CALCIUM CARBONATE [Concomitant]
  9. VITAMIN B6 [Concomitant]
     Dosage: REPORTED AS SONA VITAMIN B6

REACTIONS (4)
  - DIZZINESS [None]
  - LETHARGY [None]
  - MYALGIA [None]
  - NAUSEA [None]
